FAERS Safety Report 17884606 (Version 1)
Quarter: 2020Q2

REPORT INFORMATION
  Report Type: Spontaneous
  Country: US (occurrence: US)
  Receive Date: 20200611
  Receipt Date: 20200611
  Transmission Date: 20200714
  Serious: Yes (Death)
  Sender: FDA-Public Use
  Company Number: US-PFIZER INC-2020226267

PATIENT

DRUGS (2)
  1. VACCINE, BACILLUS CALMETTE-GUERIN [Concomitant]
     Active Substance: BCG VACCINE
     Dosage: UNK
  2. PANCURONIUM BROMIDE. [Suspect]
     Active Substance: PANCURONIUM BROMIDE
     Dosage: UNK (VIAL)

REACTIONS (3)
  - Wrong product administered [Fatal]
  - Respiratory arrest [Fatal]
  - Seizure [Fatal]
